FAERS Safety Report 23598676 (Version 1)
Quarter: 2024Q1

REPORT INFORMATION
  Report Type: Spontaneous
  Country: GB (occurrence: GB)
  Receive Date: 20240306
  Receipt Date: 20240306
  Transmission Date: 20240410
  Serious: Yes (Hospitalization, Other)
  Sender: FDA-Public Use
  Company Number: GB-CELLTRION INC.-2024GB005123

PATIENT

DRUGS (1)
  1. INFLIXIMAB [Suspect]
     Active Substance: INFLIXIMAB
     Indication: Crohn^s disease
     Dosage: 120 MG
     Route: 058
     Dates: start: 202401

REACTIONS (4)
  - Gastrointestinal haemorrhage [Unknown]
  - Intestinal obstruction [Unknown]
  - Heart rate increased [Unknown]
  - Lower respiratory tract infection [Unknown]
